FAERS Safety Report 19702827 (Version 1)
Quarter: 2021Q3

REPORT INFORMATION
  Report Type: Other
  Country: US (occurrence: US)
  Receive Date: 20210816
  Receipt Date: 20210816
  Transmission Date: 20211014
  Serious: Yes (Hospitalization, Disabling, Other)
  Sender: FDA-Public Use
  Company Number: US-UMEDICA-000125

PATIENT
  Age: 73 Year
  Sex: Female

DRUGS (2)
  1. ATORVASTATIN [Suspect]
     Active Substance: ATORVASTATIN
     Indication: HYPERLIPIDAEMIA
     Dosage: 20 MG/DAY
  2. MELOXICAM. [Concomitant]
     Active Substance: MELOXICAM
     Indication: HYPERLIPIDAEMIA

REACTIONS (5)
  - Condition aggravated [Recovering/Resolving]
  - Immune-mediated myositis [Recovering/Resolving]
  - Transaminases increased [Recovering/Resolving]
  - Rhabdomyolysis [Recovering/Resolving]
  - Myoglobinuria [Recovering/Resolving]
